FAERS Safety Report 7029982-9 (Version None)
Quarter: 2010Q4

REPORT INFORMATION
  Report Type: 
  Country: None (occurrence: None)
  Receive Date: 20101001
  Receipt Date: 20100422
  Transmission Date: 20110411
  Serious: Yes (Hospitalization)
  Sender: FDA-Public Use
  Company Number: 1-18122996

PATIENT
  Age: 57 Year
  Sex: Female
  Weight: 56.6996 kg

DRUGS (12)
  1. QUALAQUIN [Suspect]
     Indication: MUSCLE SPASMS
     Dosage: ORAL
     Route: 048
     Dates: start: 20000101, end: 20060101
  2. METFORMIN HCL [Concomitant]
  3. RANITIDINE [Concomitant]
  4. LIPITOR [Concomitant]
  5. VICODIN [Concomitant]
  6. LASIX [Concomitant]
  7. LISINOPRIL [Concomitant]
  8. PROTONIX [Concomitant]
  9. CARTIA XT [Concomitant]
  10. ZANTAC [Concomitant]
  11. CAFERGOT [Concomitant]
  12. ASPIRIN [Concomitant]

REACTIONS (3)
  - CHEST PAIN [None]
  - OFF LABEL USE [None]
  - RENAL FAILURE [None]
